FAERS Safety Report 16268578 (Version 2)
Quarter: 2019Q3

REPORT INFORMATION
  Report Type: Report from Study
  Country: MX (occurrence: MX)
  Receive Date: 20190503
  Receipt Date: 20190820
  Transmission Date: 20191004
  Serious: Yes (Hospitalization)
  Sender: FDA-Public Use
  Company Number: MX-ACTELION-A-CH2019-189051

PATIENT
  Age: 33 Year
  Sex: Female
  Weight: 67 kg

DRUGS (4)
  1. SILDENAFIL. [Concomitant]
     Active Substance: SILDENAFIL
     Dosage: 25 MG, TID
  2. OPSUMIT [Suspect]
     Active Substance: MACITENTAN
     Dosage: 10 MG, QD
     Route: 048
     Dates: start: 20190802
  3. OPSUMIT [Suspect]
     Active Substance: MACITENTAN
     Dosage: 10 MG, QD
     Route: 048
     Dates: start: 201907, end: 20190730
  4. OPSUMIT [Suspect]
     Active Substance: MACITENTAN
     Indication: PULMONARY ARTERIAL HYPERTENSION
     Dosage: 10 MG, QD
     Route: 048
     Dates: start: 201807

REACTIONS (14)
  - Haematochezia [Recovering/Resolving]
  - Asthenia [Recovering/Resolving]
  - Heart rate increased [Unknown]
  - Vomiting [Recovering/Resolving]
  - Fluid retention [Recovering/Resolving]
  - Hypotension [Recovering/Resolving]
  - Product supply issue [Unknown]
  - General physical health deterioration [Recovering/Resolving]
  - Bronchospasm [Unknown]
  - Diarrhoea [Recovering/Resolving]
  - Hypertension [Recovering/Resolving]
  - Epistaxis [Recovering/Resolving]
  - Pain [Recovering/Resolving]
  - Gastroenteritis [Recovering/Resolving]

NARRATIVE: CASE EVENT DATE: 20190315
